FAERS Safety Report 7805852-0 (Version None)
Quarter: 2011Q4

REPORT INFORMATION
  Report Type: 
  Country: None (occurrence: None)
  Receive Date: 20111011
  Receipt Date: 20111004
  Transmission Date: 20120403
  Serious: No
  Sender: FDA-Public Use
  Company Number: US-BIOGENIDEC-2011BI038086

PATIENT
  Age: 22 Year
  Sex: Female

DRUGS (2)
  1. TYSABRI [Suspect]
     Indication: MULTIPLE SCLEROSIS
     Route: 042
     Dates: start: 20100614
  2. TYSABRI [Suspect]
     Route: 042
     Dates: start: 20041101

REACTIONS (10)
  - BLOOD THYROID STIMULATING HORMONE INCREASED [None]
  - FATIGUE [None]
  - MULTIPLE SCLEROSIS RELAPSE [None]
  - THYROID FUNCTION TEST ABNORMAL [None]
  - OPTIC NEURITIS [None]
  - INSOMNIA [None]
  - ANXIETY [None]
  - DEPRESSION [None]
  - WEIGHT INCREASED [None]
  - HYPOTHYROIDISM [None]
